FAERS Safety Report 8249542-1 (Version None)
Quarter: 2012Q2

REPORT INFORMATION
  Report Type: 
  Country: None (occurrence: None)
  Receive Date: 20120402
  Receipt Date: 20120312
  Transmission Date: 20120825
  Serious: Yes (Death)
  Sender: FDA-Public Use
  Company Number: US-ASTELLAS-2012US003200

PATIENT
  Sex: Female
  Weight: 44 kg

DRUGS (5)
  1. SIMVASTATIN [Concomitant]
     Indication: BLOOD CHOLESTEROL
     Dosage: 20 MG, UID/QD
     Route: 048
  2. FOSAMAX [Concomitant]
     Indication: OSTEOPOROSIS
     Dosage: 70 MG, WEEKLY
     Route: 048
  3. ERLOTINIB HYDROCHLORIDE [Suspect]
     Indication: NON-SMALL CELL LUNG CANCER
     Dosage: 100 MG, UID/QD
     Route: 048
     Dates: start: 20120306
  4. LEVOTHYROXINE SODIUM [Concomitant]
     Indication: HYPOTHYROIDISM
     Dosage: 0.05 MG, UID/QD
     Route: 048
  5. FUROSEMIDE [Concomitant]
     Indication: OEDEMA
     Dosage: 20 MG, UID/QD
     Route: 048

REACTIONS (1)
  - DEATH [None]
